FAERS Safety Report 5945266-1 (Version None)
Quarter: 2008Q4

REPORT INFORMATION
  Report Type: 
  Country: None (occurrence: None)
  Receive Date: 20081107
  Receipt Date: 20081027
  Transmission Date: 20090506
  Serious: Yes (Other)
  Sender: FDA-Public Use
  Company Number: DE-ELI_LILLY_AND_COMPANY-DE200810006123

PATIENT
  Sex: Male
  Weight: 105 kg

DRUGS (3)
  1. CYMBALTA [Suspect]
     Dosage: 120 MG, UNKNOWN
     Route: 065
     Dates: start: 20071111
  2. TOPAMAX [Concomitant]
     Dosage: 75 MG, UNKNOWN
     Route: 065
     Dates: start: 20071101, end: 20080501
  3. LAMOTRIGINE [Concomitant]
     Dosage: 25 MG, UNKNOWN
     Route: 065
     Dates: start: 20080601

REACTIONS (1)
  - GRAND MAL CONVULSION [None]
